FAERS Safety Report 8450507-5 (Version None)
Quarter: 2012Q2

REPORT INFORMATION
  Report Type: 
  Country: None (occurrence: None)
  Receive Date: 20120620
  Receipt Date: 20120615
  Transmission Date: 20120825
  Serious: No
  Sender: FDA-Public Use
  Company Number: US-PFIZER INC-2012145011

PATIENT
  Sex: Female
  Weight: 52.154 kg

DRUGS (1)
  1. ALAVERT [Suspect]
     Indication: SEASONAL ALLERGY
     Dosage: UNK, 1X/DAY
     Route: 048
     Dates: start: 20120601

REACTIONS (1)
  - DRUG INEFFECTIVE [None]
